FAERS Safety Report 9181079 (Version 2)
Quarter: 2013Q1

REPORT INFORMATION
  Report Type: Spontaneous
  Country: US (occurrence: US)
  Receive Date: 20130322
  Receipt Date: 20130322
  Transmission Date: 20140127
  Serious: No
  Sender: FDA-Public Use
  Company Number: US-MYLANLABS-2012S1002842

PATIENT
  Age: 52 Year
  Sex: Female

DRUGS (6)
  1. EMSAM [Suspect]
     Dosage: QD
     Route: 062
     Dates: start: 20120201, end: 20120201
  2. EMSAM [Suspect]
     Dosage: QD
     Route: 062
     Dates: start: 20120202
  3. CARVEDILOL [Concomitant]
     Indication: BLOOD PRESSURE INCREASED
     Route: 048
     Dates: end: 20120201
  4. CARVEDILOL [Concomitant]
     Indication: BLOOD PRESSURE INCREASED
     Route: 048
     Dates: start: 20120202
  5. PRAZOSIN [Concomitant]
     Route: 048
  6. ALPRAZOLAM EXTENDED-RELEASE TABLETS [Concomitant]
     Route: 048

REACTIONS (4)
  - Blood pressure increased [Recovered/Resolved]
  - Dizziness [Recovered/Resolved]
  - Headache [Recovered/Resolved]
  - Wrong technique in drug usage process [Not Recovered/Not Resolved]
